FAERS Safety Report 21716392 (Version 1)
Quarter: 2022Q4

REPORT INFORMATION
  Report Type: Other
  Country: US (occurrence: US)
  Receive Date: 20221212
  Receipt Date: 20221212
  Transmission Date: 20230113
  Serious: No
  Sender: FDA-Public Use
  Company Number: US-GBT-013959

PATIENT
  Age: 80 Year
  Sex: Male

DRUGS (2)
  1. OXBRYTA [Suspect]
     Active Substance: VOXELOTOR
     Indication: Sickle cell disease
     Route: 048
     Dates: start: 20220627, end: 20220629
  2. OXBRYTA [Suspect]
     Active Substance: VOXELOTOR
     Indication: Sickle cell disease
     Route: 048
     Dates: start: 20220622, end: 20220626

REACTIONS (4)
  - Tremor [Unknown]
  - Therapy interrupted [Unknown]
  - Confusional state [Unknown]
  - Fluid retention [Unknown]

NARRATIVE: CASE EVENT DATE: 20220627
